FAERS Safety Report 4734424-X (Version None)
Quarter: 2005Q3

REPORT INFORMATION
  Report Type: 
  Country: None (occurrence: None)
  Receive Date: 20050804
  Receipt Date: 20040715
  Transmission Date: 20060218
  Serious: Yes (Hospitalization)
  Sender: FDA-Public Use
  Company Number: SK-BRISTOL-MYERS SQUIBB COMPANY-12640405

PATIENT
  Age: 41 Year
  Sex: Female

DRUGS (5)
  1. CETUXIMAB [Suspect]
     Indication: COLORECTAL CANCER METASTATIC
     Dosage: THERAPY INITIATED 13-MAY-2004-RECEIVED 7 DOSES.
     Route: 042
     Dates: start: 20040525, end: 20040525
  2. IRINOTECAN [Suspect]
     Indication: COLORECTAL CANCER METASTATIC
     Dosage: THERAPY INITIATED 13-MAY-2004-RECEIVED 7 DOSES.
     Route: 042
     Dates: start: 20040513, end: 20040513
  3. TRAMADOL HCL [Concomitant]
     Dates: start: 20040520, end: 20040709
  4. BIFONAZOLE [Concomitant]
     Dates: start: 20040514, end: 20041129
  5. METAMIZOL [Concomitant]
     Dates: start: 20040520, end: 20041129

REACTIONS (1)
  - DEEP VEIN THROMBOSIS [None]
